FAERS Safety Report 7124595-2 (Version None)
Quarter: 2010Q4

REPORT INFORMATION
  Report Type: 
  Country: None (occurrence: None)
  Receive Date: 20101122
  Receipt Date: 20101122
  Transmission Date: 20110411
  Serious: No
  Sender: FDA-Public Use
  Company Number: None

PATIENT
  Sex: Female
  Weight: 108.8633 kg

DRUGS (2)
  1. VANCOMYCIN [Suspect]
     Indication: NEUTROPENIA
     Dosage: Q-HR IV BOLUS
     Route: 040
     Dates: start: 20101117, end: 20101119
  2. MAXIPIME [Suspect]
     Indication: NEUTROPENIA
     Dosage: Q 2-4 HOUTRS IV DRIP
     Route: 041
     Dates: start: 20101117, end: 20101119

REACTIONS (7)
  - ASTHENIA [None]
  - DECREASED APPETITE [None]
  - DIZZINESS [None]
  - DRY MOUTH [None]
  - DYSPNOEA [None]
  - HEADACHE [None]
  - LETHARGY [None]
